FAERS Safety Report 19577343 (Version 1)
Quarter: 2021Q3

REPORT INFORMATION
  Report Type: Spontaneous
  Country: CN (occurrence: CN)
  Receive Date: 20210719
  Receipt Date: 20210719
  Transmission Date: 20211014
  Serious: No
  Sender: FDA-Public Use
  Company Number: CN-LUPIN PHARMACEUTICALS INC.-2021-11962

PATIENT
  Age: 64 Year
  Sex: Male

DRUGS (5)
  1. METFORMIN [Suspect]
     Active Substance: METFORMIN HYDROCHLORIDE
     Indication: TYPE 2 DIABETES MELLITUS
     Dosage: UNK
     Route: 065
  2. ALBUMIN HUMAN;PACLITAXEL [Concomitant]
     Indication: RENAL CELL CARCINOMA STAGE IV
     Dosage: 200 MILLIGRAM, ON DAY 1
     Route: 065
  3. ALBUMIN HUMAN;PACLITAXEL [Concomitant]
     Dosage: 100 MILLIGRAM, ON DAY 6
     Route: 065
  4. NEDAPLATIN [Concomitant]
     Active Substance: NEDAPLATIN
     Indication: RENAL CELL CARCINOMA STAGE IV
     Dosage: 60 MILLIGRAM ON DAY 1 AND 2
     Route: 065
  5. GLIQUIDONE [Suspect]
     Active Substance: GLIQUIDONE
     Indication: TYPE 2 DIABETES MELLITUS
     Dosage: UNK
     Route: 065

REACTIONS (1)
  - Intentional product misuse [Unknown]
